FAERS Safety Report 8255838-X (Version None)
Quarter: 2012Q2

REPORT INFORMATION
  Report Type: 
  Country: None (occurrence: None)
  Receive Date: 20120403
  Receipt Date: 20120327
  Transmission Date: 20120825
  Serious: Yes (Hospitalization)
  Sender: FDA-Public Use
  Company Number: US-ACTELION-A-NJ2007-15737

PATIENT

DRUGS (4)
  1. VENTAVIS [Concomitant]
     Indication: PULMONARY ARTERIAL HYPERTENSION
     Dosage: UNK
     Route: 055
     Dates: start: 20081216, end: 20100210
  2. TRACLEER [Suspect]
     Indication: PULMONARY ARTERIAL HYPERTENSION
     Route: 048
     Dates: start: 20070208
  3. COUMADIN [Concomitant]
  4. REVATIO [Concomitant]

REACTIONS (16)
  - CHEST DISCOMFORT [None]
  - FLUID RETENTION [None]
  - HEADACHE [None]
  - PULMONARY ARTERIAL HYPERTENSION [None]
  - ABDOMINAL DISTENSION [None]
  - WEIGHT INCREASED [None]
  - THROAT IRRITATION [None]
  - OEDEMA PERIPHERAL [None]
  - MUSCLE SPASMS [None]
  - COUGH [None]
  - CONDITION AGGRAVATED [None]
  - CARDIAC FAILURE CONGESTIVE [None]
  - RIGHT VENTRICULAR FAILURE [None]
  - CHEST PAIN [None]
  - EPISTAXIS [None]
  - BREAST DISCOMFORT [None]
